FAERS Safety Report 7495400-X (Version None)
Quarter: 2011Q2

REPORT INFORMATION
  Report Type: 
  Country: None (occurrence: None)
  Receive Date: 20110513
  Receipt Date: 20110405
  Transmission Date: 20111010
  Serious: Yes (Death, Life-Threatening, Hospitalization, Other)
  Sender: FDA-Public Use
  Company Number: 2010005044

PATIENT
  Age: 71 Year
  Sex: Male
  Weight: 86 kg

DRUGS (17)
  1. AVILAC (PORTALAK) [Concomitant]
  2. VITAMIN B1 TAB [Concomitant]
  3. ENOXAPARIN SODIUM [Concomitant]
  4. CALCILESS (REDUCTO) [Concomitant]
  5. BICARBONAT (SODIUM BICARBONATE) [Concomitant]
  6. CILAZAPRIL (CILAZAPRIL) [Concomitant]
  7. OSMO ADALAT (NIFEDIPINE) [Concomitant]
  8. IKACOR (VERAPAMIL HYDROCHLORIDE) [Concomitant]
  9. SIMOVIL (SIMVASTATIN) [Concomitant]
  10. ROCEPHIN [Concomitant]
  11. VOLTAREN [Concomitant]
  12. IOMERON (IOMEPROL) [Concomitant]
  13. ERLOTINIB HYDROCHLORIDE [Suspect]
     Indication: HEPATIC NEOPLASM MALIGNANT
     Dosage: (150 MG,QD),ORAL
     Route: 048
     Dates: start: 20101104, end: 20101114
  14. SORAFENIB(TABLET) [Suspect]
     Indication: HEPATIC NEOPLASM MALIGNANT
     Dosage: (400 MG,BID),ORAL
     Route: 048
     Dates: start: 20101104, end: 20101114
  15. GLUCOPHAGE (SIMVASTATIN) [Concomitant]
  16. VASCASE PLUS (DYNORM PLUS) [Concomitant]
  17. SODIUM CHLORIDE [Concomitant]

REACTIONS (5)
  - DEPRESSED LEVEL OF CONSCIOUSNESS [None]
  - PYREXIA [None]
  - MYOCARDIAL INFARCTION [None]
  - RETINAL ARTERY OCCLUSION [None]
  - DELIRIUM [None]
